FAERS Safety Report 25594511 (Version 1)
Quarter: 2025Q3

REPORT INFORMATION
  Report Type: Spontaneous
  Country: GB (occurrence: GB)
  Receive Date: 20250723
  Receipt Date: 20250723
  Transmission Date: 20251020
  Serious: Yes (Other)
  Sender: AUROBINDO
  Company Number: GB-MHRA-EMIS-809-4955ee0f-3831-44ad-8ef6-490cba8ec180

PATIENT
  Age: 4 Year
  Sex: Female
  Weight: 15 kg

DRUGS (2)
  1. CLARITHROMYCIN [Suspect]
     Active Substance: CLARITHROMYCIN
     Indication: Product used for unknown indication
     Route: 065
  2. PENICILLIN V [Concomitant]
     Active Substance: PENICILLIN V
     Indication: Product used for unknown indication
     Route: 065
     Dates: start: 20250523

REACTIONS (3)
  - Lip swelling [Unknown]
  - Oropharyngeal pain [Unknown]
  - Dyspnoea [Unknown]
